FAERS Safety Report 19736529 (Version 1)
Quarter: 2021Q3

REPORT INFORMATION
  Report Type: Report from Study
  Country: US (occurrence: US)
  Receive Date: 20210824
  Receipt Date: 20210824
  Transmission Date: 20211014
  Serious: Yes (Hospitalization)
  Sender: FDA-Public Use
  Company Number: US-ASTRAZENECA-2021A685020

PATIENT
  Age: 29587 Day
  Sex: Male

DRUGS (2)
  1. TAGRISSO [Suspect]
     Active Substance: OSIMERTINIB
     Dosage: 80.0MG UNKNOWN
     Route: 048
     Dates: start: 2020
  2. TAGRISSO [Suspect]
     Active Substance: OSIMERTINIB
     Dosage: DOUBLE THE DOSE UNKNOWN
     Route: 048

REACTIONS (4)
  - Intentional product use issue [Unknown]
  - Product dose omission issue [Unknown]
  - Dehydration [Unknown]
  - Drug ineffective [Unknown]

NARRATIVE: CASE EVENT DATE: 20210727
